FAERS Safety Report 5505611-8 (Version None)
Quarter: 2007Q4

REPORT INFORMATION
  Report Type: 
  Country: None (occurrence: None)
  Receive Date: 20071102
  Receipt Date: 20071023
  Transmission Date: 20080405
  Serious: Yes (Other)
  Sender: FDA-Public Use
  Company Number: FR-PFIZER INC-2007053575

PATIENT
  Sex: Female
  Weight: 55 kg

DRUGS (6)
  1. CHAMPIX [Suspect]
     Indication: SMOKING CESSATION THERAPY
     Dates: start: 20070323, end: 20070401
  2. DEPAKOTE [Concomitant]
  3. ALL OTHER THERAPEUTIC PRODUCTS [Concomitant]
  4. SEROPRAM [Concomitant]
     Route: 048
     Dates: start: 20060101
  5. LYSANXIA [Concomitant]
     Route: 048
     Dates: start: 20060101
  6. LEXOMIL [Concomitant]
     Route: 048
     Dates: start: 20060101

REACTIONS (3)
  - ALCOHOL USE [None]
  - MANIA [None]
  - SMOKER [None]
